FAERS Safety Report 4318545-1 (Version None)
Quarter: 2004Q1

REPORT INFORMATION
  Report Type: 
  Country: None (occurrence: None)
  Receive Date: 20040318
  Receipt Date: 20040305
  Transmission Date: 20041129
  Serious: Yes (Other)
  Sender: FDA-Public Use
  Company Number: PHRM2004FR01125

PATIENT
  Age: 59 Year
  Sex: Female

DRUGS (2)
  1. FRACTAL [Suspect]
     Indication: HYPERCHOLESTEROLAEMIA
     Dosage: 20 MG, QD
     Route: 048
     Dates: start: 20031119, end: 20040201
  2. EVISTA [Concomitant]
     Dosage: UNK, UNK
     Route: 048

REACTIONS (2)
  - JOINT RANGE OF MOTION DECREASED [None]
  - TENDONITIS [None]
